FAERS Safety Report 17289648 (Version 1)
Quarter: 2020Q1

REPORT INFORMATION
  Report Type: Spontaneous
  Country: PK (occurrence: PK)
  Receive Date: 20200120
  Receipt Date: 20200120
  Transmission Date: 20200409
  Serious: Yes (Other)
  Sender: FDA-Public Use
  Company Number: PK-AMNEAL PHARMACEUTICALS-2020-AMRX-00165

PATIENT
  Sex: Female

DRUGS (1)
  1. METFORMIN HYDROCHLORIDE ER [Suspect]
     Active Substance: METFORMIN HYDROCHLORIDE
     Indication: POLYCYSTIC OVARIES
     Dosage: UNK (MORE THAN TWO YEARS)
     Route: 065

REACTIONS (4)
  - Rheumatic fever [Unknown]
  - Migraine [Unknown]
  - Neuralgia [Unknown]
  - Hyperuricaemia [Unknown]
